FAERS Safety Report 7145456-9 (Version None)
Quarter: 2010Q4

REPORT INFORMATION
  Report Type: 
  Country: None (occurrence: None)
  Receive Date: 20101208
  Receipt Date: 20101130
  Transmission Date: 20110411
  Serious: No
  Sender: FDA-Public Use
  Company Number: US-PFIZER INC-2010160936

PATIENT
  Sex: Female

DRUGS (2)
  1. LYRICA [Suspect]
     Indication: PAIN
     Dosage: 400 MG, DAILY
     Route: 048
     Dates: start: 20100501
  2. LYRICA [Suspect]
     Indication: BURNING SENSATION

REACTIONS (2)
  - EAR DISCOMFORT [None]
  - ORAL DISCOMFORT [None]
